FAERS Safety Report 20017464 (Version 1)
Quarter: 2021Q4

REPORT INFORMATION
  Report Type: Spontaneous
  Country: MY (occurrence: MY)
  Receive Date: 20211030
  Receipt Date: 20211030
  Transmission Date: 20220303
  Serious: Yes (Death, Life-Threatening, Hospitalization, Other)
  Sender: FDA-Public Use
  Company Number: MY-MLMSERVICE-20211019-3173733-1

PATIENT
  Age: 35 Year
  Sex: Male

DRUGS (2)
  1. CISPLATIN [Suspect]
     Active Substance: CISPLATIN
     Indication: Nasopharyngeal cancer stage IV
  2. FLUOROURACIL [Suspect]
     Active Substance: FLUOROURACIL
     Indication: Nasopharyngeal cancer stage IV

REACTIONS (5)
  - Hepatic encephalopathy [Recovered/Resolved]
  - Sepsis [Fatal]
  - Hepatitis B reactivation [Recovering/Resolving]
  - Acute on chronic liver failure [Recovering/Resolving]
  - Off label use [Unknown]
